FAERS Safety Report 4395364-1 (Version None)
Quarter: 2004Q3

REPORT INFORMATION
  Report Type: 
  Country: None (occurrence: None)
  Receive Date: 20040712
  Receipt Date: 20040712
  Transmission Date: 20050211
  Serious: Yes (Hospitalization)
  Sender: FDA-Public Use
  Company Number: None

PATIENT
  Sex: Female

DRUGS (1)
  1. PRILOSEC OTC [Suspect]
     Dosage: 20 MG PO QD
     Route: 048
     Dates: start: 20040707, end: 20040707

REACTIONS (3)
  - HEART RATE IRREGULAR [None]
  - PAIN IN JAW [None]
  - PALPITATIONS [None]
